FAERS Safety Report 25047604 (Version 8)
Quarter: 2025Q4

REPORT INFORMATION
  Report Type: Spontaneous
  Country: US (occurrence: US)
  Receive Date: 20250306
  Receipt Date: 20251002
  Transmission Date: 20260117
  Serious: Yes (Hospitalization)
  Sender: PFIZER
  Company Number: US-PFIZER INC-202500050418

PATIENT
  Age: 84 Year
  Sex: Female
  Weight: 83.91 kg

DRUGS (2)
  1. IBRANCE [Suspect]
     Active Substance: PALBOCICLIB
     Indication: Neoplasm malignant
     Dosage: 1 TAB DAILY FOR 21 DAYS AND 7 DAYS OFF
     Route: 048
  2. IBRANCE [Suspect]
     Active Substance: PALBOCICLIB
     Dosage: TAKE 1 TABLET (100 MG) FOR 21 DAYS ON, 7 DAYS OFF
     Route: 048
     Dates: start: 202504, end: 202507

REACTIONS (8)
  - Urinary tract infection [Unknown]
  - Sepsis [Unknown]
  - Product dose omission in error [Unknown]
  - Asthenia [Unknown]
  - Dyspnoea [Unknown]
  - Fatigue [Unknown]
  - Scratch [Unknown]
  - Aphonia [Not Recovered/Not Resolved]
